FAERS Safety Report 7309439-8 (Version None)
Quarter: 2011Q1

REPORT INFORMATION
  Report Type: 
  Country: None (occurrence: None)
  Receive Date: 20110223
  Receipt Date: 20110214
  Transmission Date: 20110831
  Serious: Yes (Other)
  Sender: FDA-Public Use
  Company Number: BR-ASTRAZENECA-2011SE08811

PATIENT
  Age: 57 Year
  Sex: Male
  Weight: 76 kg

DRUGS (3)
  1. CRESTOR [Suspect]
     Indication: HYPERCHOLESTEROLAEMIA
     Route: 048
     Dates: start: 20060101, end: 20101130
  2. URSACOL [Concomitant]
     Indication: HEPATIC STEATOSIS
     Dosage: UNKNOWN DOSE ONCE DAILY
     Route: 048
     Dates: start: 20080101
  3. ASPIRIN [Concomitant]
     Dosage: UNKNOWN DOSE TWO TIMES A DAY

REACTIONS (6)
  - LIVER DISORDER [None]
  - GAMMA-GLUTAMYLTRANSFERASE INCREASED [None]
  - PERIPHERAL ARTERIAL OCCLUSIVE DISEASE [None]
  - BLOOD GLUCOSE FLUCTUATION [None]
  - AORTIC ARTERIOSCLEROSIS [None]
  - DRUG DOSE OMISSION [None]
